FAERS Safety Report 6509517-7 (Version None)
Quarter: 2009Q4

REPORT INFORMATION
  Report Type: 
  Country: None (occurrence: None)
  Receive Date: 20091222
  Receipt Date: 20091110
  Transmission Date: 20100525
  Serious: No
  Sender: FDA-Public Use
  Company Number: US-BAYER-200940907NA

PATIENT
  Age: 47 Year
  Sex: Female
  Weight: 100 kg

DRUGS (6)
  1. ULTRAVIST 300 [Suspect]
     Indication: COMPUTERISED TOMOGRAM ABDOMEN
     Dosage: TOTAL DAILY DOSE: 150 ML  UNIT DOSE: 200 ML
     Route: 042
     Dates: start: 20091110, end: 20091110
  2. LANTUS [Concomitant]
  3. HUMALOG [Concomitant]
  4. PREDNISONE [Concomitant]
     Indication: PREMEDICATION
     Dosage: AS USED: 50 MG
     Route: 048
     Dates: start: 20091101, end: 20091110
  5. BENADRYL [Concomitant]
     Indication: PREMEDICATION
     Dosage: AS USED: 50 MG
     Route: 048
     Dates: start: 20091101, end: 20091110
  6. BARIUM [Concomitant]
     Route: 048
     Dates: start: 20091110, end: 20091110

REACTIONS (7)
  - COUGH [None]
  - LACRIMATION INCREASED [None]
  - NASAL CONGESTION [None]
  - PRURITUS [None]
  - RESPIRATORY TRACT CONGESTION [None]
  - RHINORRHOEA [None]
  - SNEEZING [None]
